FAERS Safety Report 9805656 (Version 1)
Quarter: 2014Q1

REPORT INFORMATION
  Report Type: Spontaneous
  Country: US (occurrence: US)
  Receive Date: 20140109
  Receipt Date: 20140109
  Transmission Date: 20141002
  Serious: No
  Sender: FDA-Public Use
  Company Number: US-TARO-2013P1016082

PATIENT
  Age: 76 Year
  Sex: Female
  Weight: 70.31 kg

DRUGS (4)
  1. CLOBETASOL PROPIONATE (CLOBETASOL PROPIONATE) LOTION, 0.05% [Suspect]
     Route: 061
     Dates: start: 201304, end: 201306
  2. CLOBEX (CLOBETASOL PROPIONATE) SHAMPOO, 0.05% [Suspect]
  3. BLOOD PRESSURE MEDICATION [Concomitant]
  4. CHOLESTEROL MEDICATION [Concomitant]

REACTIONS (1)
  - Drug ineffective [Not Recovered/Not Resolved]
